FAERS Safety Report 15712481 (Version 2)
Quarter: 2018Q4

REPORT INFORMATION
  Report Type: Spontaneous
  Country: CH (occurrence: CH)
  Receive Date: 20181212
  Receipt Date: 20181221
  Transmission Date: 20190205
  Serious: Yes (Other)
  Sender: FDA-Public Use
  Company Number: CH-ROCHE-2226115

PATIENT
  Sex: Female

DRUGS (1)
  1. OCREVUS [Suspect]
     Active Substance: OCRELIZUMAB
     Indication: RELAPSING MULTIPLE SCLEROSIS
     Dosage: (DAY 1 30MG, DAY 2 90MG, DAY 3 180MG)
     Route: 065
     Dates: start: 20181124

REACTIONS (2)
  - Cytokine release syndrome [Unknown]
  - Hypersensitivity [Unknown]
